FAERS Safety Report 17735665 (Version 2)
Quarter: 2020Q3

REPORT INFORMATION
  Report Type: Report from Study
  Country: CL (occurrence: CL)
  Receive Date: 20200501
  Receipt Date: 20200810
  Transmission Date: 20201102
  Serious: Yes (Other)
  Sender: FDA-Public Use
  Company Number: NVSC2020CL119250

PATIENT
  Sex: Male
  Weight: 43 kg

DRUGS (1)
  1. OMNITROPE [Suspect]
     Active Substance: SOMATROPIN
     Indication: GROWTH HORMONE DEFICIENCY
     Dosage: 4.8 OT, QD
     Route: 058

REACTIONS (2)
  - Fundoscopy abnormal [Unknown]
  - Neurofibromatosis [Unknown]
